FAERS Safety Report 8181966-3 (Version None)
Quarter: 2012Q1

REPORT INFORMATION
  Report Type: 
  Country: None (occurrence: None)
  Receive Date: 20120302
  Receipt Date: 20120222
  Transmission Date: 20120608
  Serious: Yes (Other)
  Sender: FDA-Public Use
  Company Number: JP-ASTRAZENECA-2012SE13285

PATIENT

DRUGS (1)
  1. ROPIVACAINE HYDROCHLORIDE [Suspect]
     Dosage: 2 MG/ML, 2 ML/H FOR 16 HOURS
     Route: 042

REACTIONS (1)
  - INCORRECT ROUTE OF DRUG ADMINISTRATION [None]
